FAERS Safety Report 4572055-5 (Version None)
Quarter: 2005Q1

REPORT INFORMATION
  Report Type: 
  Country: None (occurrence: None)
  Receive Date: 20050202
  Receipt Date: 20050121
  Transmission Date: 20050727
  Serious: No
  Sender: FDA-Public Use
  Company Number: USA050188542

PATIENT
  Age: 25 Year
  Sex: Male

DRUGS (1)
  1. STRATTERA [Suspect]
     Dosage: 80 MG DAY

REACTIONS (3)
  - ALANINE AMINOTRANSFERASE INCREASED [None]
  - LABORATORY TEST INTERFERENCE [None]
  - WEIGHT INCREASED [None]
